FAERS Safety Report 15489434 (Version 1)
Quarter: 2018Q4

REPORT INFORMATION
  Report Type: Spontaneous
  Country: CN (occurrence: CN)
  Receive Date: 20181011
  Receipt Date: 20181011
  Transmission Date: 20190205
  Serious: Yes (Other)
  Sender: FDA-Public Use
  Company Number: CN-PFIZER INC-2018406787

PATIENT
  Age: 28 Year
  Sex: Male
  Weight: 70 kg

DRUGS (2)
  1. ZITHROMAX [Suspect]
     Active Substance: AZITHROMYCIN DIHYDRATE
     Indication: UPPER RESPIRATORY TRACT INFECTION
     Dosage: 0.5 G, 1X/DAY
     Route: 041
     Dates: start: 20180806, end: 20180806
  2. KAI WEI KE [Concomitant]
     Indication: UPPER RESPIRATORY TRACT INFECTION
     Dosage: 5 G, 2X/DAY
     Route: 041
     Dates: start: 20180806, end: 20180806

REACTIONS (2)
  - Chest discomfort [Recovering/Resolving]
  - Amaurosis fugax [Recovering/Resolving]

NARRATIVE: CASE EVENT DATE: 20180806
